FAERS Safety Report 4433404-1 (Version None)
Quarter: 2004Q3

REPORT INFORMATION
  Report Type: 
  Country: None (occurrence: None)
  Receive Date: 20040824
  Receipt Date: 20040812
  Transmission Date: 20050211
  Serious: Yes (Hospitalization)
  Sender: FDA-Public Use
  Company Number: FR-JNJFOC-20040804565

PATIENT
  Age: 34 Year
  Sex: Male

DRUGS (10)
  1. INFLIXIMAB, RECOMBINANT- BLINDED (INFLIXIMAB, RECOMBINANT) [Suspect]
     Indication: COLITIS ULCERATIVE
     Dosage: SEE IMAGE
     Route: 042
     Dates: start: 20040426, end: 20040426
  2. INFLIXIMAB, RECOMBINANT- BLINDED (INFLIXIMAB, RECOMBINANT) [Suspect]
     Indication: COLITIS ULCERATIVE
     Dosage: SEE IMAGE
     Route: 042
     Dates: start: 20031121
  3. INFLIXIMAB, RECOMBINANT- BLINDED (INFLIXIMAB, RECOMBINANT) [Suspect]
     Indication: COLITIS ULCERATIVE
     Dosage: SEE IMAGE
     Route: 042
     Dates: start: 20031205
  4. INFLIXIMAB, RECOMBINANT- BLINDED (INFLIXIMAB, RECOMBINANT) [Suspect]
     Indication: COLITIS ULCERATIVE
     Dosage: SEE IMAGE
     Route: 042
     Dates: start: 20040105
  5. INFLIXIMAB, RECOMBINANT- BLINDED (INFLIXIMAB, RECOMBINANT) [Suspect]
     Indication: COLITIS ULCERATIVE
     Dosage: SEE IMAGE
     Route: 042
     Dates: start: 20040301
  6. PLACEBO (PLACEBO) LYOPHILIZED POWDER [Suspect]
     Indication: COLITIS ULCERATIVE
     Dosage: SEE IMAGE
     Route: 042
     Dates: start: 20040426, end: 20040426
  7. PLACEBO (PLACEBO) LYOPHILIZED POWDER [Suspect]
     Indication: COLITIS ULCERATIVE
     Dosage: SEE IMAGE
     Route: 042
     Dates: start: 20031121
  8. PLACEBO (PLACEBO) LYOPHILIZED POWDER [Suspect]
     Indication: COLITIS ULCERATIVE
     Dosage: SEE IMAGE
     Route: 042
     Dates: start: 20031205
  9. PLACEBO (PLACEBO) LYOPHILIZED POWDER [Suspect]
     Indication: COLITIS ULCERATIVE
     Dosage: SEE IMAGE
     Route: 042
     Dates: start: 20040105
  10. PLACEBO (PLACEBO) LYOPHILIZED POWDER [Suspect]
     Indication: COLITIS ULCERATIVE
     Dosage: SEE IMAGE
     Route: 042
     Dates: start: 20040301

REACTIONS (1)
  - COLITIS ULCERATIVE [None]
